FAERS Safety Report 14950312 (Version 2)
Quarter: 2024Q2

REPORT INFORMATION
  Report Type: Spontaneous
  Country: US (occurrence: US)
  Receive Date: 20180530
  Receipt Date: 20240426
  Transmission Date: 20240716
  Serious: Yes (Life-Threatening, Hospitalization, Other)
  Sender: FDA-Public Use
  Company Number: US-AUROBINDO-AUR-APL-2018-027625

PATIENT
  Age: 57 Year
  Sex: Male

DRUGS (8)
  1. PREDNISONE [Suspect]
     Active Substance: PREDNISONE
     Indication: Immunosuppression
     Dosage: 8 MILLIGRAM, TWO TIMES A DAY
     Route: 065
  2. PREDNISONE [Suspect]
     Active Substance: PREDNISONE
     Dosage: 10 MILLIGRAM, TWO TIMES A DAY
     Route: 065
  3. PREDNISONE [Suspect]
     Active Substance: PREDNISONE
     Dosage: 40 MILLIGRAM, ONCE A DAY
     Route: 065
  4. MYCOPHENOLIC ACID [Suspect]
     Active Substance: MYCOPHENOLIC ACID
     Indication: Immunosuppression
     Dosage: 1000 MILLIGRAM, TWO TIMES A DAY
     Route: 065
  5. MYCOPHENOLIC ACID [Suspect]
     Active Substance: MYCOPHENOLIC ACID
     Dosage: 500 MILLIGRAM, TWO TIMES A DAY
     Route: 016
  6. TACROLIMUS [Suspect]
     Active Substance: TACROLIMUS
     Indication: Immunosuppression
     Dosage: 12 MILLIGRAM, TWO TIMES A DAY
     Route: 065
  7. TACROLIMUS [Suspect]
     Active Substance: TACROLIMUS
     Dosage: 8 MILLIGRAM, TWO TIMES A DAY
     Route: 065
  8. TACROLIMUS [Suspect]
     Active Substance: TACROLIMUS
     Dosage: 1.5 MILLIGRAM, TWO TIMES A DAY
     Route: 065

REACTIONS (12)
  - Post transplant lymphoproliferative disorder [Recovered/Resolved]
  - T-cell lymphoma [Recovered/Resolved]
  - Bone marrow failure [Unknown]
  - Graft versus host disease [Unknown]
  - Leukopenia [Unknown]
  - Anaemia [Unknown]
  - Apoptosis [Unknown]
  - Cryptitis [Unknown]
  - Lymphadenopathy [Unknown]
  - Oesophagitis [Unknown]
  - Pyrexia [Unknown]
  - Rash [Unknown]
